FAERS Safety Report 6735687-1 (Version None)
Quarter: 2010Q2

REPORT INFORMATION
  Report Type: 
  Country: None (occurrence: None)
  Receive Date: 20100521
  Receipt Date: 20100510
  Transmission Date: 20101027
  Serious: Yes (Hospitalization)
  Sender: FDA-Public Use
  Company Number: US-JNJFOC-20100207875

PATIENT
  Sex: Female
  Weight: 55.4 kg

DRUGS (6)
  1. REMICADE [Suspect]
     Indication: CROHN'S DISEASE
     Dosage: DOSE WAS 277 MG.
     Route: 042
  2. REMICADE [Suspect]
     Dosage: DOSE WAS 277 MG.
     Route: 042
  3. BENADRYL [Concomitant]
     Route: 048
  4. PEPCID [Concomitant]
  5. REGULAR INSULIN [Concomitant]
  6. GLARGINE [Concomitant]

REACTIONS (7)
  - ABDOMINAL PAIN [None]
  - CHEST PAIN [None]
  - CHILLS [None]
  - COUGH [None]
  - HEART RATE INCREASED [None]
  - INFUSION RELATED REACTION [None]
  - VOMITING [None]
